FAERS Safety Report 9654161 (Version 2)
Quarter: 2013Q4

REPORT INFORMATION
  Report Type: Spontaneous
  Country: SE (occurrence: SE)
  Receive Date: 20131029
  Receipt Date: 20131029
  Transmission Date: 20140711
  Serious: Yes (Other)
  Sender: FDA-Public Use
  Company Number: SE-BAXTER-2013BAX039792

PATIENT
  Sex: Female

DRUGS (4)
  1. SENDOXAN 2000 MG PULVER TILL INJEKTIONSV?TSKA, L?SNING [Suspect]
     Indication: BREAST CANCER
     Route: 042
     Dates: start: 20130605
  2. FLUOROURACIL [Suspect]
     Indication: BREAST CANCER
     Route: 042
     Dates: start: 20130605
  3. EPIRUBICIN [Suspect]
     Indication: BREAST CANCER
     Route: 042
     Dates: start: 20130605
  4. SODIUM CHLORIDE [Suspect]
     Indication: BREAST CANCER
     Route: 065

REACTIONS (7)
  - Pallor [Recovered/Resolved]
  - Paraesthesia oral [Recovered/Resolved]
  - Dyspnoea [Recovered/Resolved]
  - Dysphonia [Recovered/Resolved]
  - Hypoaesthesia oral [Recovered/Resolved]
  - Hypoaesthesia oral [Recovered/Resolved]
  - Dyspnoea [Recovered/Resolved]
